FAERS Safety Report 23477171 (Version 1)
Quarter: 2024Q1

REPORT INFORMATION
  Report Type: Report from Study
  Country: US (occurrence: US)
  Receive Date: 20240204
  Receipt Date: 20240204
  Transmission Date: 20240410
  Serious: No
  Sender: FDA-Public Use
  Company Number: US-EXELIXIS-CABO-23065299

PATIENT
  Sex: Male

DRUGS (16)
  1. CABOMETYX [Suspect]
     Active Substance: CABOZANTINIB S-MALATE
     Indication: Renal cancer
     Dosage: 40 MG, QD
     Route: 048
     Dates: start: 20230414
  2. AMIODARONE [Concomitant]
     Active Substance: AMIODARONE
  3. AMLODIPINE [Concomitant]
     Active Substance: AMLODIPINE BESYLATE
  4. ATORVASTATIN [Concomitant]
     Active Substance: ATORVASTATIN
  5. BUMETANIDE [Concomitant]
     Active Substance: BUMETANIDE
  6. ELIQUIS [Concomitant]
     Active Substance: APIXABAN
  7. GLIMEPIRIDE [Concomitant]
     Active Substance: GLIMEPIRIDE
  8. IRON [Concomitant]
     Active Substance: IRON
  9. KLOR-CON M20 [Concomitant]
     Active Substance: POTASSIUM CHLORIDE
  10. LEVEMIR [Concomitant]
     Active Substance: INSULIN DETEMIR
  11. LEVOTHYROXINE [Concomitant]
     Active Substance: LEVOTHYROXINE\LEVOTHYROXINE SODIUM
  12. LISINOPRIL [Concomitant]
     Active Substance: LISINOPRIL
  13. METOLAZONE [Concomitant]
     Active Substance: METOLAZONE
  14. SERTRALINE [Concomitant]
     Active Substance: SERTRALINE HYDROCHLORIDE
  15. TAMSULOSIN [Concomitant]
     Active Substance: TAMSULOSIN
  16. VICTOZA [Concomitant]
     Active Substance: LIRAGLUTIDE

REACTIONS (2)
  - Blister [Unknown]
  - Gastrointestinal disorder [Unknown]
